FAERS Safety Report 16151147 (Version 1)
Quarter: 2019Q2

REPORT INFORMATION
  Report Type: Spontaneous
  Country: US (occurrence: US)
  Receive Date: 20190402
  Receipt Date: 20190402
  Transmission Date: 20190711
  Serious: No
  Sender: FDA-Public Use
  Company Number: US-AMGEN-USASP2019051292

PATIENT
  Age: 44 Year
  Sex: Female
  Weight: 108.86 kg

DRUGS (6)
  1. ENBREL [Suspect]
     Active Substance: ETANERCEPT
     Indication: PRODUCT USED FOR UNKNOWN INDICATION
     Dosage: UNK
     Route: 065
  2. RITUXAN [Concomitant]
     Active Substance: RITUXIMAB
     Indication: ARTHRITIS
     Dosage: UNK UNK, QWK FOR TWO WEEKS
     Route: 042
     Dates: start: 201902
  3. FLECTOR [DICLOFENAC SODIUM] [Suspect]
     Active Substance: DICLOFENAC SODIUM
     Indication: ARTHRITIS
     Dosage: UNK
     Route: 065
     Dates: start: 201412
  4. RASUVO [Concomitant]
     Active Substance: METHOTREXATE SODIUM
     Indication: ARTHRITIS
     Dosage: 20 MILLIGRAM, QWK
     Route: 058
     Dates: start: 201603
  5. GABAPENTIN. [Concomitant]
     Active Substance: GABAPENTIN
  6. LYRICA [Concomitant]
     Active Substance: PREGABALIN
     Dosage: 400 MILLIGRAM, TID
     Route: 065
     Dates: start: 201702

REACTIONS (2)
  - Fibromyalgia [Unknown]
  - Adverse event [Unknown]
